FAERS Safety Report 18636836 (Version 1)
Quarter: 2020Q4

REPORT INFORMATION
  Report Type: Spontaneous
  Country: US (occurrence: US)
  Receive Date: 20201218
  Receipt Date: 20201218
  Transmission Date: 20210114
  Serious: Yes (Other)
  Sender: FDA-Public Use
  Company Number: US-ASTRAZENECA-2020SF66756

PATIENT
  Sex: Female
  Weight: 65.8 kg

DRUGS (4)
  1. ALBUTEROL. [Concomitant]
     Active Substance: ALBUTEROL
     Indication: BRONCHOSPASM
  2. PREDNISONE. [Concomitant]
     Active Substance: PREDNISONE
  3. MULTIVITAMIN [Concomitant]
     Active Substance: VITAMINS
  4. SYMBICORT [Suspect]
     Active Substance: BUDESONIDE\FORMOTEROL FUMARATE DIHYDRATE
     Indication: COVID-19
     Dosage: 160/4.5 TWO PUFFS TWICE DAILY
     Route: 055
     Dates: start: 20201117

REACTIONS (5)
  - Bronchospasm [Unknown]
  - Dyspnoea [Unknown]
  - Migraine [Unknown]
  - Off label use [Not Recovered/Not Resolved]
  - Nausea [Unknown]
